FAERS Safety Report 9525784 (Version 2)
Quarter: 2013Q3

REPORT INFORMATION
  Report Type: Spontaneous
  Country: US (occurrence: US)
  Receive Date: 20130915
  Receipt Date: 20130930
  Transmission Date: 20140515
  Serious: No
  Sender: FDA-Public Use
  Company Number: US-009507513-1309USA000387

PATIENT
  Age: 55 Year
  Sex: Male

DRUGS (3)
  1. REBETOL [Suspect]
     Indication: HEPATITIS C
     Dosage: UNK
     Route: 048
     Dates: start: 20130823
  2. PEGINTRON [Suspect]
     Indication: HEPATITIS C
     Dosage: REDIPEN
     Dates: start: 20130823
  3. VICTRELIS [Suspect]
     Dosage: UNK
     Dates: start: 20130920

REACTIONS (10)
  - Injection site erythema [Unknown]
  - Pruritus [Unknown]
  - Nasopharyngitis [Unknown]
  - Influenza like illness [Unknown]
  - Injection site reaction [Unknown]
  - Weight decreased [Unknown]
  - Gastrointestinal disorder [Unknown]
  - Red blood cell count decreased [Unknown]
  - White blood cell count decreased [Unknown]
  - Skin disorder [Unknown]
